FAERS Safety Report 25665153 (Version 2)
Quarter: 2025Q3

REPORT INFORMATION
  Report Type: Spontaneous
  Country: US (occurrence: US)
  Receive Date: 20250811
  Receipt Date: 20250826
  Transmission Date: 20251020
  Serious: Yes (Life-Threatening, Hospitalization)
  Sender: TEVA
  Company Number: US-TEVA-VS-3360118

PATIENT
  Age: 64 Year
  Sex: Female

DRUGS (1)
  1. DEXAMETHASONE [Suspect]
     Active Substance: DEXAMETHASONE
     Indication: Eosinophilic granulomatosis with polyangiitis
     Route: 065

REACTIONS (2)
  - Drug ineffective [Unknown]
  - Acinetobacter infection [Unknown]
